FAERS Safety Report 6746979-4 (Version None)
Quarter: 2010Q2

REPORT INFORMATION
  Report Type: 
  Country: None (occurrence: None)
  Receive Date: 20100528
  Receipt Date: 20100518
  Transmission Date: 20101027
  Serious: Yes (Other)
  Sender: FDA-Public Use
  Company Number: US-ROCHE-704945

PATIENT
  Age: 31 Year
  Sex: Female

DRUGS (1)
  1. ACCUTANE [Suspect]
     Indication: ACNE
     Route: 065
     Dates: start: 19880101

REACTIONS (4)
  - ALOPECIA [None]
  - GLAUCOMA [None]
  - SKIN MASS [None]
  - STEVENS-JOHNSON SYNDROME [None]
